FAERS Safety Report 17911754 (Version 2)
Quarter: 2020Q2

REPORT INFORMATION
  Report Type: Report from Study
  Country: US (occurrence: US)
  Receive Date: 20200618
  Receipt Date: 20200628
  Transmission Date: 20200714
  Serious: Yes (Disabling)
  Sender: FDA-Public Use
  Company Number: US-PFIZER INC-2020226208

PATIENT
  Age: 26 Year
  Sex: Female
  Weight: 78.9 kg

DRUGS (2)
  1. BINIMETINIB [Suspect]
     Active Substance: BINIMETINIB
     Indication: GLIOBLASTOMA
     Dosage: 45 MG, BID
     Route: 048
     Dates: start: 20200505, end: 20200601
  2. ENCORAFENIB [Suspect]
     Active Substance: ENCORAFENIB
     Indication: GLIOBLASTOMA
     Dosage: 450 MG, QD
     Route: 048
     Dates: start: 20200505, end: 20200601

REACTIONS (1)
  - Retinal artery occlusion [Recovering/Resolving]

NARRATIVE: CASE EVENT DATE: 20200519
